FAERS Safety Report 6102285-2 (Version None)
Quarter: 2009Q1

REPORT INFORMATION
  Report Type: 
  Country: None (occurrence: None)
  Receive Date: 20090304
  Receipt Date: 20090225
  Transmission Date: 20090719
  Serious: Yes (Hospitalization)
  Sender: FDA-Public Use
  Company Number: US-ASTRAZENECA-2009UW05198

PATIENT
  Age: 17 Month
  Sex: Male
  Weight: 12.7 kg

DRUGS (1)
  1. PULMICORT RESPULES [Suspect]
     Dosage: 0.25 MG BID
     Route: 055
     Dates: start: 20090201

REACTIONS (7)
  - ALOPECIA [None]
  - ASTHMA [None]
  - COUGH [None]
  - ILL-DEFINED DISORDER [None]
  - NASOPHARYNGITIS [None]
  - PYREXIA [None]
  - RHINORRHOEA [None]
